FAERS Safety Report 14455252 (Version 1)
Quarter: 2018Q1

REPORT INFORMATION
  Report Type: Spontaneous
  Country: US (occurrence: US)
  Receive Date: 20180129
  Receipt Date: 20180129
  Transmission Date: 20180509
  Serious: No
  Sender: FDA-Public Use
  Company Number: US-009507513-1801USA004533

PATIENT
  Age: 26 Year
  Sex: Female
  Weight: 93.2 kg

DRUGS (3)
  1. NUVARING [Suspect]
     Active Substance: ETHINYL ESTRADIOL\ETONOGESTREL
     Indication: CONTRACEPTION
     Dosage: 1 DF, UNK
     Route: 067
  2. CLONAZEPAM. [Concomitant]
     Active Substance: CLONAZEPAM
  3. FLEXERIL [Concomitant]
     Active Substance: CYCLOBENZAPRINE HYDROCHLORIDE

REACTIONS (3)
  - Device expulsion [Recovered/Resolved]
  - Device breakage [Unknown]
  - Product quality issue [Unknown]

NARRATIVE: CASE EVENT DATE: 20180110
